FAERS Safety Report 16225262 (Version 2)
Quarter: 2019Q2

REPORT INFORMATION
  Report Type: Spontaneous
  Country: CA (occurrence: CA)
  Receive Date: 20190422
  Receipt Date: 20190626
  Transmission Date: 20190711
  Serious: Yes (Other)
  Sender: FDA-Public Use
  Company Number: CA-PFIZER INC-2018315336

PATIENT
  Age: 53 Year
  Sex: Female

DRUGS (4)
  1. XELJANZ [Suspect]
     Active Substance: TOFACITINIB CITRATE
     Indication: RHEUMATOID ARTHRITIS
     Dosage: 5 MG, TWICE A DAY (BID)
     Route: 048
     Dates: start: 20180721, end: 20180906
  2. METHOTREXATE. [Concomitant]
     Active Substance: METHOTREXATE
     Indication: CONDITION AGGRAVATED
     Dosage: 25/0.5 MG/ML, WEEKLY
  3. NAPROXEN. [Concomitant]
     Active Substance: NAPROXEN
     Indication: CONDITION AGGRAVATED
     Dosage: UNKNOWN DOSE, AS NEEDED
  4. XELJANZ [Suspect]
     Active Substance: TOFACITINIB CITRATE
     Dosage: 5 MG, TWICE A DAY (BID)
     Route: 048
     Dates: start: 2018, end: 20190607

REACTIONS (11)
  - Cough [Not Recovered/Not Resolved]
  - Gastric neoplasm [Unknown]
  - Oropharyngeal pain [Unknown]
  - Abdominal pain [Recovered/Resolved]
  - Blood urine present [Recovered/Resolved]
  - Insomnia [Unknown]
  - Paraesthesia [Unknown]
  - Infection [Unknown]
  - Drug ineffective [Unknown]
  - Back pain [Recovered/Resolved]
  - Fatigue [Unknown]

NARRATIVE: CASE EVENT DATE: 2018
